FAERS Safety Report 4446051-2 (Version None)
Quarter: 2004Q3

REPORT INFORMATION
  Report Type: 
  Country: None (occurrence: None)
  Receive Date: 20040910
  Receipt Date: 20040901
  Transmission Date: 20050211
  Serious: Yes (Other)
  Sender: FDA-Public Use
  Company Number: CN-GLAXOSMITHKLINE-B0344778A

PATIENT
  Sex: Male

DRUGS (1)
  1. HEPTODIN [Suspect]
     Dosage: 100MG PER DAY
     Route: 048
     Dates: start: 20020301

REACTIONS (5)
  - ALANINE AMINOTRANSFERASE INCREASED [None]
  - DISEASE RECURRENCE [None]
  - HBV DNA INCREASED [None]
  - LIVER TRANSPLANT [None]
  - SEROCONVERSION TEST NEGATIVE [None]
